FAERS Safety Report 6915712-5 (Version None)
Quarter: 2010Q3

REPORT INFORMATION
  Report Type: 
  Country: None (occurrence: None)
  Receive Date: 20100804
  Receipt Date: 20100719
  Transmission Date: 20110219
  Serious: Yes (Hospitalization)
  Sender: FDA-Public Use
  Company Number: 2010AP001490

PATIENT
  Age: 48 Year
  Sex: Female

DRUGS (4)
  1. SIMVASTATIN [Suspect]
     Indication: HYPERCHOLESTEROLAEMIA
     Dosage: 40 MG;PO
     Route: 048
     Dates: end: 20100601
  2. CLARITHROMYCIN [Concomitant]
     Indication: PNEUMONIA
     Dosage: 500 MG;PO
     Route: 048
     Dates: start: 20100515, end: 20100525
  3. AMOXICILLIN [Concomitant]
  4. VANCOMYCIN [Concomitant]

REACTIONS (4)
  - LETHARGY [None]
  - MUSCLE NECROSIS [None]
  - MYALGIA [None]
  - MYOSITIS [None]
